FAERS Safety Report 24633027 (Version 1)
Quarter: 2024Q4

REPORT INFORMATION
  Report Type: Spontaneous
  Country: US (occurrence: US)
  Receive Date: 20241118
  Receipt Date: 20241118
  Transmission Date: 20250114
  Serious: No
  Sender: PERRIGO
  Company Number: US-PERRIGO-24US009806

PATIENT
  Sex: Female

DRUGS (2)
  1. OPILL [Suspect]
     Active Substance: NORGESTREL
     Indication: Menstrual cycle management
     Dosage: UNKNOWN, UNKNOWN
     Route: 048
     Dates: start: 202408
  2. OPILL [Suspect]
     Active Substance: NORGESTREL
     Indication: Dysmenorrhoea

REACTIONS (5)
  - Intermenstrual bleeding [Recovered/Resolved]
  - Heavy menstrual bleeding [Recovered/Resolved]
  - Polymenorrhoea [Recovered/Resolved]
  - Drug effective for unapproved indication [Recovered/Resolved]
  - Product use in unapproved indication [Recovered/Resolved]

NARRATIVE: CASE EVENT DATE: 20240801
